FAERS Safety Report 6692232-7 (Version None)
Quarter: 2010Q2

REPORT INFORMATION
  Report Type: 
  Country: None (occurrence: None)
  Receive Date: 20100422
  Receipt Date: 20100415
  Transmission Date: 20101027
  Serious: Yes (Other)
  Sender: FDA-Public Use
  Company Number: US-BAYER-201019654NA

PATIENT
  Age: 50 Year
  Sex: Female
  Weight: 125 kg

DRUGS (2)
  1. MAGNEVIST [Suspect]
     Indication: NUCLEAR MAGNETIC RESONANCE IMAGING BRAIN
     Dosage: TOTAL DAILY DOSE: 20 ML  UNIT DOSE: 20 ML
     Route: 042
     Dates: start: 20100415, end: 20100415
  2. VALIUM [Concomitant]
     Indication: PREMEDICATION
     Dosage: 10-12 MG.
     Route: 048
     Dates: start: 20100415, end: 20100415

REACTIONS (4)
  - ANAPHYLACTIC REACTION [None]
  - DYSPHONIA [None]
  - OROPHARYNGEAL PAIN [None]
  - SNEEZING [None]
